FAERS Safety Report 8490157-8 (Version None)
Quarter: 2012Q3

REPORT INFORMATION
  Report Type: 
  Country: None (occurrence: None)
  Receive Date: 20120705
  Receipt Date: 20120627
  Transmission Date: 20120928
  Serious: Yes (Hospitalization, Other)
  Sender: FDA-Public Use
  Company Number: FR-TEVA-346536ISR

PATIENT
  Sex: Female
  Weight: 80 kg

DRUGS (3)
  1. ANTIDEPRESSANTS [Concomitant]
     Indication: DEPRESSION
     Dates: end: 20120501
  2. ANXIOLYTICS [Concomitant]
     Indication: DEPRESSION
     Dates: end: 20120501
  3. COPAXONE [Suspect]
     Indication: MULTIPLE SCLEROSIS
     Dosage: 20 MILLIGRAM;
     Route: 058
     Dates: start: 20110301

REACTIONS (9)
  - DEPRESSION [None]
  - DELUSION [None]
  - WEIGHT DECREASED [None]
  - MULTIPLE SCLEROSIS RELAPSE [None]
  - SENSORY LOSS [None]
  - PARAESTHESIA [None]
  - INJECTION SITE ERYTHEMA [None]
  - INJECTION SITE PAIN [None]
  - FEELING HOT [None]
